FAERS Safety Report 5933143-1 (Version None)
Quarter: 2008Q4

REPORT INFORMATION
  Report Type: 
  Country: None (occurrence: None)
  Receive Date: 20081028
  Receipt Date: 20081020
  Transmission Date: 20090506
  Serious: Yes (Other)
  Sender: FDA-Public Use
  Company Number: FI-ABBOTT-08P-055-0483050-00

PATIENT
  Sex: Female

DRUGS (4)
  1. DEPRAKINE [Suspect]
     Indication: MYOCLONIC EPILEPSY
     Route: 048
  2. DEPRAKINE [Suspect]
     Dosage: LESS THAN 1000 MG PER DAY
     Route: 048
  3. DEPRAKINE [Suspect]
     Route: 048
  4. DESOGESTREL W/ETHINYLESTRADIOL [Interacting]
     Indication: ORAL CONTRACEPTION
     Route: 065

REACTIONS (4)
  - ANTICONVULSANT DRUG LEVEL DECREASED [None]
  - DRUG INTERACTION [None]
  - EPILEPSY [None]
  - TREMOR [None]
